FAERS Safety Report 7499575-8 (Version None)
Quarter: 2011Q2

REPORT INFORMATION
  Report Type: 
  Country: None (occurrence: None)
  Receive Date: 20110524
  Receipt Date: 20110516
  Transmission Date: 20111010
  Serious: Yes (Hospitalization, Other)
  Sender: FDA-Public Use
  Company Number: US-SANOFI-AVENTIS-2011SA031516

PATIENT
  Age: 40 Year
  Sex: Male

DRUGS (2)
  1. LANTUS [Suspect]
     Dosage: 50-60 UNITS
     Route: 058
     Dates: start: 20020101
  2. TOPROL-XL [Concomitant]

REACTIONS (3)
  - CHEST PAIN [None]
  - HYPERGLYCAEMIA [None]
  - CORONARY ARTERY OCCLUSION [None]
